FAERS Safety Report 6143551-4 (Version None)
Quarter: 2009Q2

REPORT INFORMATION
  Report Type: 
  Country: None (occurrence: None)
  Receive Date: 20090403
  Receipt Date: 20090324
  Transmission Date: 20091009
  Serious: Yes (Other)
  Sender: FDA-Public Use
  Company Number: US-PFIZER INC-2008159497

PATIENT
  Sex: Male

DRUGS (15)
  1. VIAGRA [Suspect]
     Indication: ERECTILE DYSFUNCTION
     Dosage: FREQUENCY: PRN,
  2. METOPROLOL [Concomitant]
     Dosage: UNK
  3. BYETTA [Concomitant]
     Dosage: UNK
  4. METFORMIN HCL [Concomitant]
     Dosage: UNK
  5. GLIPIZIDE [Concomitant]
     Dosage: UNK
  6. MONTELUKAST SODIUM [Concomitant]
     Dosage: UNK
  7. LISINOPRIL [Concomitant]
     Dosage: UNK
  8. ZOCOR [Concomitant]
     Dosage: UNK
  9. ASCORBIC ACID [Concomitant]
     Dosage: UNK
  10. VITAMIN E [Concomitant]
  11. MULTI-VITAMINS [Concomitant]
     Dosage: UNK
  12. GLUCOSAMINE [Concomitant]
     Dosage: UNK
  13. CHONDROITIN [Concomitant]
     Dosage: UNK
  14. ALL OTHER THERAPEUTIC PRODUCTS [Concomitant]
     Dosage: UNK
  15. ACETYLSALICYLIC ACID [Concomitant]
     Dosage: UNK

REACTIONS (11)
  - CORONARY ARTERY BYPASS [None]
  - DRUG INEFFECTIVE [None]
  - EYE DISORDER [None]
  - HEART VALVE OPERATION [None]
  - HYPOTENSION [None]
  - INTENTIONAL DRUG MISUSE [None]
  - JOINT SPRAIN [None]
  - OCULAR VASCULAR DISORDER [None]
  - RETINAL OEDEMA [None]
  - UNEVALUABLE EVENT [None]
  - VISION BLURRED [None]
